FAERS Safety Report 11938128 (Version 1)
Quarter: 2016Q1

REPORT INFORMATION
  Report Type: Spontaneous
  Country: US (occurrence: None)
  Receive Date: 20160121
  Receipt Date: 20160121
  Transmission Date: 20160526
  Serious: Yes (Disabling)
  Sender: FDA-Public Use
  Company Number: None

PATIENT
  Age: 56 Year
  Sex: Male
  Weight: 97.52 kg

DRUGS (5)
  1. ELIQUIS [Concomitant]
     Active Substance: APIXABAN
  2. MULTI VITAMIN [Concomitant]
     Active Substance: VITAMINS
  3. AMIODARONE 200MG UNKNOWN [Suspect]
     Active Substance: AMIODARONE
     Indication: ATRIAL FIBRILLATION
     Dosage: 2 PILLS
     Route: 048
     Dates: start: 20150815, end: 20151208
  4. METOPROLOL TARTRATE. [Concomitant]
     Active Substance: METOPROLOL TARTRATE
  5. FIBER PILL [Concomitant]

REACTIONS (2)
  - Blindness unilateral [None]
  - Optic nerve injury [None]

NARRATIVE: CASE EVENT DATE: 20160108
